FAERS Safety Report 4295707-3 (Version None)
Quarter: 2004Q1

REPORT INFORMATION
  Report Type: 
  Country: None (occurrence: None)
  Receive Date: 20040216
  Receipt Date: 20040205
  Transmission Date: 20041129
  Serious: Yes (Other)
  Sender: FDA-Public Use
  Company Number: GB-GLAXOSMITHKLINE-B0322536A

PATIENT
  Age: 57 Year
  Sex: Female
  Weight: 60 kg

DRUGS (4)
  1. AMOXICILLIN [Suspect]
     Indication: LOWER RESPIRATORY TRACT INFECTION
     Dosage: 500MG UNKNOWN
     Route: 048
     Dates: start: 20040120, end: 20040124
  2. IMIPRAMINE [Concomitant]
     Route: 048
     Dates: start: 20020101
  3. RISPERIDONE [Concomitant]
     Route: 048
     Dates: start: 20020101
  4. DF 118 [Concomitant]
     Dosage: 60MG FOUR TIMES PER DAY
     Route: 048
     Dates: start: 20020101

REACTIONS (2)
  - HALLUCINATION [None]
  - VISION BLURRED [None]
